FAERS Safety Report 12508701 (Version 5)
Quarter: 2016Q4

REPORT INFORMATION
  Report Type: Report from Study
  Country: DE (occurrence: DE)
  Receive Date: 20160629
  Receipt Date: 20161025
  Transmission Date: 20170207
  Serious: Yes (Hospitalization, Other)
  Sender: FDA-Public Use
  Company Number: PHHO2016DE009172

PATIENT
  Sex: Female
  Weight: 78 kg

DRUGS (7)
  1. VALSARTAN. [Concomitant]
     Active Substance: VALSARTAN
     Indication: HYPERTENSION
     Dosage: 160 MG, QD
     Route: 065
     Dates: start: 20160601, end: 20160622
  2. PACLITAXEL. [Suspect]
     Active Substance: PACLITAXEL
     Dosage: 70 MG, UNK
     Route: 042
     Dates: start: 20160607, end: 20160622
  3. PAZOPANIB [Suspect]
     Active Substance: PAZOPANIB
     Indication: ANGIOSARCOMA
     Dosage: 800 MG, UNK
     Route: 048
     Dates: start: 20160502, end: 20160522
  4. PAZOPANIB [Suspect]
     Active Substance: PAZOPANIB
     Dosage: 600 MG, UNK
     Route: 048
     Dates: start: 20160621
  5. PACLITAXEL. [Suspect]
     Active Substance: PACLITAXEL
     Indication: ANGIOSARCOMA
     Dosage: 70 MG, UNK
     Route: 042
     Dates: start: 20160502, end: 20160517
  6. NOVALGIN [Concomitant]
     Active Substance: METAMIZOLE SODIUM
     Indication: PAIN
     Dosage: 1 G, QID
     Route: 065
     Dates: start: 20160606, end: 20160619
  7. AMITRIPTYLLINE [Concomitant]
     Active Substance: AMITRIPTYLINE
     Indication: INSOMNIA
     Dosage: 3 DF, QD
     Route: 065
     Dates: start: 20160617, end: 20160622

REACTIONS (2)
  - Neutropenia [Recovered/Resolved]
  - General physical health deterioration [Recovered/Resolved]

NARRATIVE: CASE EVENT DATE: 20160523
